FAERS Safety Report 7985473-X (Version None)
Quarter: 2011Q4

REPORT INFORMATION
  Report Type: 
  Country: None (occurrence: None)
  Receive Date: 20111214
  Receipt Date: 20111129
  Transmission Date: 20120403
  Serious: Yes (Death)
  Sender: FDA-Public Use
  Company Number: B0767605A

PATIENT
  Age: 7 Year
  Sex: Female

DRUGS (2)
  1. NITRAZEPAM [Concomitant]
  2. LAMOTRIGINE [Suspect]
     Indication: EPILEPSY
     Dosage: 200 MG

REACTIONS (3)
  - HYPOXIC-ISCHAEMIC ENCEPHALOPATHY [None]
  - SUDDEN UNEXPLAINED DEATH IN EPILEPSY [None]
  - ASPIRATION [None]
